FAERS Safety Report 23178893 (Version 1)
Quarter: 2023Q4

REPORT INFORMATION
  Report Type: Spontaneous
  Country: JP (occurrence: JP)
  Receive Date: 20231113
  Receipt Date: 20231113
  Transmission Date: 20240110
  Serious: Yes (Other)
  Sender: FDA-Public Use
  Company Number: JP-PFIZER INC-PV202300181818

PATIENT

DRUGS (2)
  1. LORBRENA [Suspect]
     Active Substance: LORLATINIB
     Dosage: UNK
  2. ALECTINIB [Concomitant]
     Active Substance: ALECTINIB
     Dosage: UNK

REACTIONS (2)
  - Disseminated intravascular coagulation [Unknown]
  - Neoplasm progression [Unknown]
